FAERS Safety Report 14651340 (Version 1)
Quarter: 2018Q1

REPORT INFORMATION
  Report Type: Spontaneous
  Country: US (occurrence: US)
  Receive Date: 20180316
  Receipt Date: 20180316
  Transmission Date: 20180509
  Serious: No
  Sender: FDA-Public Use
  Company Number: None

PATIENT
  Age: 42 Year
  Sex: Female

DRUGS (1)
  1. SIMPONI [Suspect]
     Active Substance: GOLIMUMAB

REACTIONS (5)
  - Fatigue [None]
  - Rash erythematous [None]
  - Rash [None]
  - Rash pruritic [None]
  - Rhinorrhoea [None]

NARRATIVE: CASE EVENT DATE: 20180315
